FAERS Safety Report 21886746 (Version 1)
Quarter: 2023Q1

REPORT INFORMATION
  Report Type: Spontaneous
  Country: US (occurrence: None)
  Receive Date: 20230119
  Receipt Date: 20230119
  Transmission Date: 20230418
  Serious: No
  Sender: FDA-Public Use
  Company Number: None

PATIENT
  Age: 54 Year
  Sex: Female

DRUGS (1)
  1. VARITHENA [Suspect]
     Active Substance: POLIDOCANOL
     Dates: start: 20211013

REACTIONS (4)
  - Vein discolouration [None]
  - Post procedural complication [None]
  - Haemosiderin stain [None]
  - Drug ineffective [None]

NARRATIVE: CASE EVENT DATE: 20211013
